FAERS Safety Report 8907218 (Version 2)
Quarter: 2012Q4

REPORT INFORMATION
  Report Type: 
  Country: US (occurrence: US)
  Receive Date: 20121114
  Receipt Date: 20121207
  Transmission Date: 20130627
  Serious: Yes (Other)
  Sender: FDA-Public Use
  Company Number: PHEH2012US021002

PATIENT
  Age: 72 Year
  Sex: Female
  Weight: 65.31 kg

DRUGS (17)
  1. DIOVAN [Suspect]
     Indication: HYPERTENSION
     Dosage: 80 mg, QD
     Route: 048
  2. MONTELUKAST [Concomitant]
     Dosage: UNK
  3. DETROL LA [Concomitant]
     Dosage: UNK
  4. METOPROLOL [Concomitant]
  5. ESTRADIOL [Concomitant]
  6. ISOSORBIDE [Concomitant]
     Dosage: UNK
  7. CRESTOR [Concomitant]
     Dosage: UNK
  8. GLIPIZIDE ER [Concomitant]
     Dosage: UNK
  9. OMEPRAZOLE [Concomitant]
  10. MECLIZINE [Concomitant]
     Dosage: UNK
  11. NOVOLOG [Concomitant]
  12. SYMBICORT [Concomitant]
  13. PROVENTIL [Concomitant]
  14. TRAMADOL [Concomitant]
  15. LANTUS [Concomitant]
     Dosage: UNK
  16. NITRO [Concomitant]
     Dosage: UNK
  17. PREVENTOL [Concomitant]
     Dosage: UNK

REACTIONS (2)
  - Fall [Recovering/Resolving]
  - Wrist fracture [Unknown]
